FAERS Safety Report 24351028 (Version 1)
Quarter: 2024Q3

REPORT INFORMATION
  Report Type: Report from Study
  Country: AT (occurrence: AT)
  Receive Date: 20240923
  Receipt Date: 20240923
  Transmission Date: 20241017
  Serious: No
  Sender: ROCHE
  Company Number: AT-ROCHE-2877918

PATIENT
  Age: 84 Year
  Sex: Female
  Weight: 82.0 kg

DRUGS (28)
  1. TRASTUZUMAB [Suspect]
     Active Substance: TRASTUZUMAB
     Indication: HER2 positive breast cancer
     Route: 041
     Dates: start: 20181128, end: 20181128
  2. TRASTUZUMAB [Suspect]
     Active Substance: TRASTUZUMAB
     Route: 041
     Dates: start: 20181219
  3. LETROZOLE [Suspect]
     Active Substance: LETROZOLE
     Indication: HER2 positive breast cancer
     Route: 048
     Dates: start: 20181121
  4. CANDESARTAN CILEXETIL AND HYDROCHLOROTHIAZIDE [Concomitant]
     Active Substance: CANDESARTAN CILEXETIL\HYDROCHLOROTHIAZIDE
     Dosage: ONGOING = NOT CHECKED
     Dates: end: 20201015
  5. NOVALGIN (AUSTRIA) [Concomitant]
     Indication: Sciatica
     Dosage: ONGOING = NOT CHECKED
     Dates: start: 20190501, end: 20201015
  6. DRONABINOL [Concomitant]
     Active Substance: DRONABINOL
     Dosage: ONGOING = NOT CHECKED
     Dates: start: 20190607, end: 20201015
  7. PRAMIPEXOLE [Concomitant]
     Active Substance: PRAMIPEXOLE\PRAMIPEXOLE DIHYDROCHLORIDE
     Dosage: ONGOING = NOT CHECKED
     Route: 065
     Dates: start: 20190501, end: 20201015
  8. PRAMIPEXOLE [Concomitant]
     Active Substance: PRAMIPEXOLE\PRAMIPEXOLE DIHYDROCHLORIDE
     Dosage: ONGOING = NOT CHECKED
     Route: 065
     Dates: start: 20190501, end: 20201015
  9. NEBIVOLOL HYDROCHLORIDE [Concomitant]
     Active Substance: NEBIVOLOL HYDROCHLORIDE
     Dosage: ONGOING = NOT CHECKED
     Dates: end: 20201015
  10. CALMOLAN [Concomitant]
     Dosage: ONGOING = CHECKED
  11. RANITIDINE HYDROCHLORIDE [Concomitant]
     Active Substance: RANITIDINE HYDROCHLORIDE
     Dosage: ONGOING = NOT CHECKED
     Dates: end: 20201015
  12. RILMENIDINE [Concomitant]
     Active Substance: RILMENIDINE
     Dosage: ONGOING = NOT CHECKED
     Dates: end: 20201015
  13. SIMVASTATIN [Concomitant]
     Active Substance: SIMVASTATIN
     Dosage: ONGOING = NOT CHECKED
     Dates: end: 20201015
  14. PANTOPRAZOLE SODIUM [Concomitant]
     Active Substance: PANTOPRAZOLE SODIUM
     Indication: Prophylaxis
     Route: 048
     Dates: start: 20180501
  15. NOVALGIN (AUSTRIA) [Concomitant]
     Route: 050
     Dates: start: 20190501, end: 202010
  16. DRONABINOL [Concomitant]
     Active Substance: DRONABINOL
     Indication: Breast cancer
     Dosage: 10 QTT
     Dates: start: 20190607, end: 202010
  17. PRAMIPEXOLE [Concomitant]
     Active Substance: PRAMIPEXOLE\PRAMIPEXOLE DIHYDROCHLORIDE
  18. XGEVA [Concomitant]
     Active Substance: DENOSUMAB
     Indication: Metastases to bone
     Route: 048
     Dates: start: 20181106, end: 202101
  19. XGEVA [Concomitant]
     Active Substance: DENOSUMAB
     Route: 058
     Dates: start: 202306
  20. ASCORBIC ACID\CALCIUM PHOSPHATE\CHOLECALCIFEROL\CITRIC ACID MONOHYDRAT [Concomitant]
     Active Substance: ASCORBIC ACID\CALCIUM PHOSPHATE\CHOLECALCIFEROL\CITRIC ACID MONOHYDRATE
     Indication: Prophylaxis
     Dates: start: 202010
  21. ASCORBIC ACID\CALCIUM PHOSPHATE\CHOLECALCIFEROL\CITRIC ACID MONOHYDRAT [Concomitant]
     Active Substance: ASCORBIC ACID\CALCIUM PHOSPHATE\CHOLECALCIFEROL\CITRIC ACID MONOHYDRATE
     Dates: start: 202010
  22. TRAMADOL HYDROCHLORIDE [Concomitant]
     Active Substance: TRAMADOL HYDROCHLORIDE
     Dates: start: 202010
  23. TRAMADOL [Concomitant]
     Active Substance: TRAMADOL\TRAMADOL HYDROCHLORIDE
     Route: 065
     Dates: start: 202010
  24. PREGABALIN ACC [Concomitant]
     Route: 048
     Dates: start: 202010
  25. MIRTAZAPINE [Concomitant]
     Active Substance: MIRTAZAPINE
     Route: 048
     Dates: start: 202010
  26. AUGMENTIN [Concomitant]
     Active Substance: AMOXICILLIN\CLAVULANATE POTASSIUM
     Route: 048
     Dates: start: 202108, end: 202108
  27. DEXIBUPROFEN [Concomitant]
     Active Substance: DEXIBUPROFEN
     Route: 048
     Dates: start: 202108, end: 20210831
  28. GABAPENTIN [Concomitant]
     Active Substance: GABAPENTIN
     Indication: Neuralgia

REACTIONS (1)
  - Joint swelling [Recovered/Resolved]

NARRATIVE: CASE EVENT DATE: 20200801
